FAERS Safety Report 6299679-1 (Version None)
Quarter: 2009Q3

REPORT INFORMATION
  Report Type: 
  Country: None (occurrence: None)
  Receive Date: 20090806
  Receipt Date: 20090731
  Transmission Date: 20100115
  Serious: Yes (Other)
  Sender: FDA-Public Use
  Company Number: US-ELI_LILLY_AND_COMPANY-US200908000195

PATIENT
  Sex: Male

DRUGS (3)
  1. HUMALOG MIX 75/25 [Suspect]
     Indication: TYPE 1 DIABETES MELLITUS
     Dosage: 35 U, EACH MORNING
  2. HUMALOG MIX 75/25 [Suspect]
     Dosage: 22 U, EACH EVENING
  3. NOVOLOG [Concomitant]
     Indication: TYPE 1 DIABETES MELLITUS
     Dosage: UNK, AS NEEDED

REACTIONS (4)
  - BLOOD GLUCOSE INCREASED [None]
  - DIABETIC KETOACIDOSIS [None]
  - NAUSEA [None]
  - POOR QUALITY DRUG ADMINISTERED [None]
